FAERS Safety Report 14983498 (Version 1)
Quarter: 2018Q2

REPORT INFORMATION
  Report Type: Report from Study
  Country: DE (occurrence: DE)
  Receive Date: 20180607
  Receipt Date: 20180607
  Transmission Date: 20180711
  Serious: Yes (Hospitalization, Other)
  Sender: FDA-Public Use
  Company Number: DE-PFIZER INC-2018226299

PATIENT
  Age: 79 Year
  Sex: Female
  Weight: 67 kg

DRUGS (29)
  1. EUSAPRIM [Suspect]
     Active Substance: SULFAMETHOXAZOLE\TRIMETHOPRIM
     Indication: CYSTITIS
     Dosage: 2 DF, 1X/DAY
     Route: 048
     Dates: start: 20000226, end: 20000227
  2. FUROSEMID [Suspect]
     Active Substance: FUROSEMIDE
     Indication: OEDEMA
     Dosage: 40 MG, 1X/DAY
     Route: 048
     Dates: start: 20000130, end: 20000218
  3. TEGRETAL [Suspect]
     Active Substance: CARBAMAZEPINE
     Indication: SEIZURE
     Dosage: 600 MG, 1X/DAY
     Route: 048
     Dates: start: 20000125, end: 20000224
  4. ZANTAC [Suspect]
     Active Substance: RANITIDINE HYDROCHLORIDE
     Indication: PROPHYLAXIS
     Dosage: 300 MG, 1X/DAY
     Route: 048
     Dates: start: 20000225, end: 20000227
  5. NORVASC [Concomitant]
     Active Substance: AMLODIPINE BESYLATE
     Indication: CORONARY ARTERY DISEASE
     Dosage: 1 DF, 1X/DAY
     Route: 048
     Dates: start: 20000130, end: 20000227
  6. ISMO [Suspect]
     Active Substance: ISOSORBIDE MONONITRATE
     Indication: CORONARY ARTERY DISEASE
     Dosage: 20 MG, 1X/DAY
     Route: 048
     Dates: start: 20000225, end: 20000227
  7. DIAZEPAM. [Suspect]
     Active Substance: DIAZEPAM
     Indication: SEIZURE
     Dosage: 5 MG, 1X/DAY
     Route: 042
     Dates: start: 20000218, end: 20000218
  8. PHENHYDAN [Suspect]
     Active Substance: PHENYTOIN
     Indication: SEIZURE
     Dosage: 100 MG, UNK
     Route: 048
     Dates: start: 20000226, end: 20000226
  9. PHENHYDAN [Suspect]
     Active Substance: PHENYTOIN
     Dosage: 100 MG, UNK
     Route: 048
     Dates: start: 20000227, end: 20000227
  10. FUROSEMID [Suspect]
     Active Substance: FUROSEMIDE
     Dosage: UNK
     Route: 048
     Dates: start: 20000218, end: 20000224
  11. AMLODIPINE BESILATE [Suspect]
     Active Substance: AMLODIPINE BESYLATE
     Indication: CORONARY ARTERY DISEASE
     Dosage: 5 MG, 1X/DAY
     Route: 048
     Dates: start: 20000130, end: 20000220
  12. TRAMAL [Suspect]
     Active Substance: TRAMADOL
     Indication: PAIN
     Dosage: 20 GTT, UNK
     Route: 048
     Dates: start: 20000221, end: 20000221
  13. RANITIC [Suspect]
     Active Substance: RANITIDINE HYDROCHLORIDE
     Indication: GASTRIC ULCER
     Dosage: 300 MG, 1X/DAY
     Route: 048
     Dates: start: 20000218, end: 20000224
  14. TRAMAL [Suspect]
     Active Substance: TRAMADOL
     Dosage: 20 GTT, UNK
     Route: 048
     Dates: start: 20000218, end: 20000218
  15. PHENHYDAN [Suspect]
     Active Substance: PHENYTOIN
     Dosage: 100 MG, UNK
     Route: 042
     Dates: start: 20000226, end: 20000226
  16. LUMINAL [Suspect]
     Active Substance: PHENOBARBITAL SODIUM
     Indication: SEIZURE
     Dosage: UNK
     Route: 030
     Dates: start: 20000225, end: 20000227
  17. ISOSORBIDE MONONITRATE. [Suspect]
     Active Substance: ISOSORBIDE MONONITRATE
     Indication: CORONARY ARTERY DISEASE
     Dosage: 20 MG, 1X/DAY
     Route: 048
     Dates: start: 20000218, end: 20000224
  18. FURORESE [Suspect]
     Active Substance: FUROSEMIDE
     Indication: OEDEMA
     Dosage: 40 MG, 1X/DAY
     Route: 048
     Dates: start: 20000218, end: 20000224
  19. EUSAPRIM [Suspect]
     Active Substance: SULFAMETHOXAZOLE\TRIMETHOPRIM
     Indication: URINARY TRACT INFECTION
  20. LASIX [Suspect]
     Active Substance: FUROSEMIDE
     Indication: CORONARY ARTERY DISEASE
     Dosage: 40 MG, 1X/DAY
     Route: 048
     Dates: start: 20000225, end: 20000227
  21. DIAZEPAM. [Suspect]
     Active Substance: DIAZEPAM
     Dosage: 5 MG, 1X/DAY
     Route: 042
     Dates: start: 20000225, end: 20000225
  22. BEN-U-RON [Concomitant]
     Active Substance: ACETAMINOPHEN
     Indication: PAIN
     Dosage: 1 DF, 1X/DAY
     Route: 054
     Dates: start: 20000226, end: 20000226
  23. ISOSORBIDE DINITRATE. [Suspect]
     Active Substance: ISOSORBIDE DINITRATE
     Dosage: 1 DF, 1X/DAY
     Route: 048
     Dates: start: 20000130, end: 20000218
  24. TRAMAL [Suspect]
     Active Substance: TRAMADOL
     Dosage: 20 GTT, UNK
     Route: 048
     Dates: start: 20000223, end: 20000223
  25. RANITIC [Suspect]
     Active Substance: RANITIDINE HYDROCHLORIDE
     Indication: PROPHYLAXIS
  26. DIAZEPAM. [Suspect]
     Active Substance: DIAZEPAM
     Dosage: 5 MG, 1X/DAY
     Route: 042
     Dates: start: 20000220, end: 20000220
  27. PHENHYDAN [Suspect]
     Active Substance: PHENYTOIN
     Indication: SEIZURE
     Dosage: 250 MG, UNK
     Route: 042
     Dates: start: 20000225, end: 20000225
  28. RIVOTRIL [Suspect]
     Active Substance: CLONAZEPAM
     Indication: SEIZURE
     Dosage: 1 MG, 1X/DAY
     Route: 042
     Dates: start: 20000224, end: 20000224
  29. ASPIRIN. [Suspect]
     Active Substance: ASPIRIN
     Indication: CORONARY ARTERY DISEASE
     Dosage: 100 MG, 1X/DAY
     Route: 048
     Dates: start: 20000130, end: 20000227

REACTIONS (6)
  - Pruritus [Recovered/Resolved]
  - Conjunctivitis [Recovered/Resolved]
  - Mouth ulceration [Recovered/Resolved]
  - Rash erythematous [Recovered/Resolved]
  - Stevens-Johnson syndrome [Recovered/Resolved]
  - Genital erosion [Recovered/Resolved]

NARRATIVE: CASE EVENT DATE: 20000227
